FAERS Safety Report 5673921-X (Version None)
Quarter: 2008Q2

REPORT INFORMATION
  Report Type: 
  Country: None (occurrence: None)
  Receive Date: 20080228
  Receipt Date: 20071127
  Transmission Date: 20081010
  Serious: Yes (Other)
  Sender: FDA-Public Use
  Company Number: US200711006435

PATIENT
  Sex: Female

DRUGS (2)
  1. SYMBYAX [Suspect]
     Dosage: 1 D/F
     Dates: start: 20070920, end: 20071115
  2. LUNESTA [Concomitant]

REACTIONS (1)
  - ERYTHEMA MULTIFORME [None]
